FAERS Safety Report 4344549-9 (Version None)
Quarter: 2004Q2

REPORT INFORMATION
  Report Type: 
  Country: None (occurrence: None)
  Receive Date: 20040422
  Receipt Date: 20030617
  Transmission Date: 20050107
  Serious: Yes (Hospitalization, Disabling)
  Sender: FDA-Public Use
  Company Number: US-MERCK-0306USA02100

PATIENT
  Age: 48 Year
  Sex: Female
  Weight: 91 kg

DRUGS (4)
  1. ALLEGRA [Concomitant]
     Route: 048
  2. VIOXX [Suspect]
     Indication: ARTHRITIS
     Route: 048
     Dates: start: 20000101, end: 20010529
  3. VIOXX [Suspect]
     Route: 065
     Dates: start: 20010101
  4. ZOLOFT [Concomitant]
     Route: 048
     Dates: start: 20000620

REACTIONS (48)
  - ADVERSE EVENT [None]
  - ANGINA UNSTABLE [None]
  - ANION GAP DECREASED [None]
  - AORTIC VALVE INCOMPETENCE [None]
  - AORTIC VALVE SCLEROSIS [None]
  - ASTHENIA [None]
  - ASTHMA [None]
  - BLOOD CHOLESTEROL INCREASED [None]
  - BLOOD PRESSURE DECREASED [None]
  - BLOOD PRESSURE DIASTOLIC INCREASED [None]
  - BLOOD PRESSURE ORTHOSTATIC [None]
  - BREATH SOUNDS DECREASED [None]
  - BUNDLE BRANCH BLOCK LEFT [None]
  - CARDIAC FAILURE [None]
  - CARDIAC FAILURE CONGESTIVE [None]
  - CARDIOMYOPATHY [None]
  - CHEST PAIN [None]
  - COMPARTMENT SYNDROME [None]
  - DEPRESSION [None]
  - DERMATITIS CONTACT [None]
  - DISCOMFORT [None]
  - DIZZINESS [None]
  - EAR INFECTION [None]
  - ELECTROCARDIOGRAM AMBULATORY ABNORMAL [None]
  - EXTRASYSTOLES [None]
  - FLUID RETENTION [None]
  - GANGLION [None]
  - HEADACHE [None]
  - HYPERLIPIDAEMIA [None]
  - HYPERTENSION [None]
  - IMPAIRED WORK ABILITY [None]
  - INSOMNIA [None]
  - MAJOR DEPRESSION [None]
  - MITRAL VALVE INCOMPETENCE [None]
  - MITRAL VALVE SCLEROSIS [None]
  - OEDEMA PERIPHERAL [None]
  - PAIN [None]
  - PALPITATIONS [None]
  - PULMONARY VALVE INCOMPETENCE [None]
  - RESPIRATORY RATE INCREASED [None]
  - SINUSITIS [None]
  - SLEEP DISORDER DUE TO GENERAL MEDICAL CONDITION, INSOMNIA TYPE [None]
  - TENDONITIS [None]
  - TRICUSPID VALVE INCOMPETENCE [None]
  - VENTRICULAR EXTRASYSTOLES [None]
  - VENTRICULAR HYPERTROPHY [None]
  - VENTRICULAR HYPOKINESIA [None]
  - WEIGHT FLUCTUATION [None]
